FAERS Safety Report 21290411 (Version 1)
Quarter: 2022Q3

REPORT INFORMATION
  Report Type: Spontaneous
  Country: CN (occurrence: CN)
  Receive Date: 20220902
  Receipt Date: 20220902
  Transmission Date: 20221026
  Serious: Yes (Hospitalization)
  Sender: FDA-Public Use
  Company Number: CN-BoehringerIngelheim-2022-BI-190385

PATIENT
  Age: 58 Year
  Sex: Male
  Weight: 59 kg

DRUGS (4)
  1. GILOTRIF [Suspect]
     Active Substance: AFATINIB
     Indication: Lung neoplasm malignant
     Route: 048
     Dates: start: 20220508
  2. GILOTRIF [Suspect]
     Active Substance: AFATINIB
     Dates: start: 20220711, end: 20220831
  3. SINTILIMAB [Suspect]
     Active Substance: SINTILIMAB
     Indication: Lung neoplasm malignant
     Route: 048
     Dates: start: 20211216, end: 20220407
  4. Anlotinib Hydrochloride capsules [Concomitant]
     Indication: Lung neoplasm malignant
     Route: 048
     Dates: start: 20220126, end: 20220831

REACTIONS (2)
  - Diarrhoea [Recovering/Resolving]
  - Immune-mediated enterocolitis [Recovering/Resolving]

NARRATIVE: CASE EVENT DATE: 20220621
